FAERS Safety Report 9725599 (Version 1)
Quarter: 2013Q4

REPORT INFORMATION
  Report Type: Spontaneous
  Country: US (occurrence: None)
  Receive Date: 20131127
  Receipt Date: 20131127
  Transmission Date: 20140711
  Serious: Yes (Hospitalization, Disabling)
  Sender: FDA-Public Use
  Company Number: 2035598

PATIENT
  Age: 37 Year
  Sex: Male

DRUGS (6)
  1. CYTARABINE [Suspect]
     Indication: DISEASE RECURRENCE
     Route: 013
  2. CYTARABINE [Suspect]
     Indication: NERVOUS SYSTEM DISORDER
     Route: 013
  3. METHOTREXATE [Suspect]
     Indication: DISEASE RECURRENCE
  4. METHOTREXATE [Suspect]
     Indication: NERVOUS SYSTEM DISORDER
  5. THERAPEUTIC RADIOPHARMACEUTICALS [Suspect]
     Indication: DISEASE RECURRENCE
  6. LENALIDOMIDE [Suspect]
     Indication: DISEASE RECURRENCE

REACTIONS (5)
  - Muscular weakness [None]
  - Paresis [None]
  - Paraplegia [None]
  - Urinary retention [None]
  - Nuclear magnetic resonance imaging abnormal [None]
